FAERS Safety Report 4572470-X (Version None)
Quarter: 2005Q1

REPORT INFORMATION
  Report Type: 
  Country: None (occurrence: None)
  Receive Date: 20050207
  Receipt Date: 20030113
  Transmission Date: 20050727
  Serious: Yes (Hospitalization, Disabling, Other)
  Sender: FDA-Public Use
  Company Number: US-MERCK-0301USA01084

PATIENT
  Age: 33 Year
  Sex: Male
  Weight: 68 kg

DRUGS (7)
  1. VIOXX [Suspect]
     Indication: PAIN
     Route: 048
     Dates: start: 20020509, end: 20020518
  2. VIOXX [Suspect]
     Route: 048
     Dates: start: 20020518, end: 20020601
  3. VIOXX [Suspect]
     Indication: SURGERY
     Route: 048
     Dates: start: 20020509, end: 20020518
  4. VIOXX [Suspect]
     Route: 048
     Dates: start: 20020518, end: 20020601
  5. LORTAB [Concomitant]
     Route: 048
  6. EXCEDRIN (MIGRAINE) [Concomitant]
     Route: 065
  7. ASPIRIN [Concomitant]
     Indication: HEADACHE
     Route: 065

REACTIONS (21)
  - ASTHENIA [None]
  - BACK INJURY [None]
  - BLADDER DISORDER [None]
  - BLOOD CHOLESTEROL INCREASED [None]
  - CEREBROVASCULAR ACCIDENT [None]
  - CONSTIPATION [None]
  - DELUSION [None]
  - DIARRHOEA [None]
  - EMOTIONAL DISTRESS [None]
  - EPENDYMOMA [None]
  - HEADACHE [None]
  - HERPES ZOSTER [None]
  - INTERVERTEBRAL DISC PROTRUSION [None]
  - MENINGITIS [None]
  - MUSCLE CONTRACTIONS INVOLUNTARY [None]
  - PARANOIA [None]
  - PSYCHOTIC DISORDER [None]
  - PYREXIA [None]
  - STOMACH DISCOMFORT [None]
  - TREMOR [None]
  - VENOUS THROMBOSIS LIMB [None]
